FAERS Safety Report 6571893-7 (Version None)
Quarter: 2010Q1

REPORT INFORMATION
  Report Type: 
  Country: None (occurrence: None)
  Receive Date: 20100205
  Receipt Date: 20100129
  Transmission Date: 20100710
  Serious: Yes (Hospitalization)
  Sender: FDA-Public Use
  Company Number: US-BRISTOL-MYERS SQUIBB COMPANY-14955876

PATIENT
  Age: 75 Year
  Sex: Female
  Weight: 81 kg

DRUGS (1)
  1. DASATINIB [Suspect]
     Indication: ADENOCARCINOMA PANCREAS
     Dosage: TOTAL DOSE ADMINISTERED ON 23DEC09 TOTAL DOSE IN THIS COURSE= 840 MG
     Route: 048
     Dates: start: 20091217, end: 20091223

REACTIONS (3)
  - CHOLANGITIS [None]
  - DEHYDRATION [None]
  - DIARRHOEA [None]
